FAERS Safety Report 15100501 (Version 1)
Quarter: 2018Q3

REPORT INFORMATION
  Report Type: Report from Study
  Country: IT (occurrence: IT)
  Receive Date: 20180703
  Receipt Date: 20180703
  Transmission Date: 20181010
  Serious: Yes (Other)
  Sender: FDA-Public Use
  Company Number: IT-TEVA-2018-IT-917591

PATIENT
  Age: 2 Year
  Sex: Male

DRUGS (2)
  1. LORAZEPAM. [Suspect]
     Active Substance: LORAZEPAM
     Indication: ACCIDENTAL OVERDOSE
     Dates: start: 20180219, end: 20180219
  2. COUMADIN [Suspect]
     Active Substance: WARFARIN SODIUM
     Indication: ACCIDENTAL OVERDOSE
     Route: 048
     Dates: start: 20180219, end: 20180219

REACTIONS (2)
  - Toxicity to various agents [Recovered/Resolved]
  - Somnolence [Recovered/Resolved]

NARRATIVE: CASE EVENT DATE: 20180219
